FAERS Safety Report 10215097 (Version 1)
Quarter: 2014Q2

REPORT INFORMATION
  Report Type: Spontaneous
  Country: US (occurrence: US)
  Receive Date: 20140603
  Receipt Date: 20140603
  Transmission Date: 20141212
  Serious: No
  Sender: FDA-Public Use
  Company Number: US-009507513-1405USA005637

PATIENT
  Sex: Male

DRUGS (2)
  1. CLARITIN CHEWABLE TABLETS [Suspect]
     Indication: RHINORRHOEA
     Dosage: ABOUT 2 DOSES
     Route: 048
  2. CLARITIN CHEWABLE TABLETS [Suspect]
     Indication: SNEEZING
     Dosage: UNK
     Route: 048

REACTIONS (2)
  - Drug effect delayed [Unknown]
  - Drug effect delayed [Unknown]
